FAERS Safety Report 19431276 (Version 2)
Quarter: 2025Q1

REPORT INFORMATION
  Report Type: Spontaneous
  Country: US (occurrence: US)
  Receive Date: 20210618
  Receipt Date: 20250317
  Transmission Date: 20250408
  Serious: No
  Sender: ROCHE
  Company Number: US-ROCHE-2699980

PATIENT
  Sex: Female

DRUGS (7)
  1. ACTEMRA [Suspect]
     Active Substance: TOCILIZUMAB
     Indication: Rheumatoid arthritis
     Dosage: 162/0.9 MG/ML, ACTPEN
     Route: 058
     Dates: start: 20200422
  2. FOLIC ACID [Concomitant]
     Active Substance: FOLIC ACID
  3. IBUPROFEN [Concomitant]
     Active Substance: IBUPROFEN
  4. NAPROXEN SODIUM [Concomitant]
     Active Substance: NAPROXEN SODIUM
  5. VITAMIN D [Concomitant]
     Active Substance: VITAMIN D NOS
  6. CYCLOBENZAPRINE HYDROCHLORIDE [Concomitant]
     Active Substance: CYCLOBENZAPRINE HYDROCHLORIDE
  7. METHOTREXATE [Concomitant]
     Active Substance: METHOTREXATE

REACTIONS (3)
  - Swelling [Not Recovered/Not Resolved]
  - Ill-defined disorder [Not Recovered/Not Resolved]
  - Alopecia [Not Recovered/Not Resolved]
